FAERS Safety Report 18116690 (Version 1)
Quarter: 2020Q3

REPORT INFORMATION
  Report Type: Other
  Country: IT (occurrence: IT)
  Receive Date: 20200806
  Receipt Date: 20200806
  Transmission Date: 20201103
  Serious: Yes (Other)
  Sender: FDA-Public Use
  Company Number: IT-ROCHE-1356290

PATIENT

DRUGS (2)
  1. CAPECITABINE. [Suspect]
     Active Substance: CAPECITABINE
     Indication: NEUROENDOCRINE TUMOUR
     Dosage: OVER 14 DAYS BID OF EACH 28?DAY CYCLE
     Route: 048
  2. TEMOZOLOMIDE. [Suspect]
     Active Substance: TEMOZOLOMIDE
     Indication: NEUROENDOCRINE TUMOUR
     Dosage: 150?200 MG/M2/DAY ON DAYS 10?14 OF EACH 28?DAY CYCLE
     Route: 048

REACTIONS (8)
  - Hypertriglyceridaemia [Unknown]
  - Leukopenia [Unknown]
  - Asthenia [Unknown]
  - Thrombocytopenia [Recovered/Resolved]
  - Vomiting [Unknown]
  - Thrombocytosis [Not Recovered/Not Resolved]
  - Hyperglycaemia [Unknown]
  - Anaemia [Unknown]
